FAERS Safety Report 8173163-2 (Version None)
Quarter: 2012Q1

REPORT INFORMATION
  Report Type: 
  Country: None (occurrence: None)
  Receive Date: 20120229
  Receipt Date: 20110502
  Transmission Date: 20120608
  Serious: No
  Sender: FDA-Public Use
  Company Number: US-GLAXOSMITHKLINE-A0925338A

PATIENT
  Sex: Female

DRUGS (2)
  1. IMITREX [Suspect]
  2. SUMATRIPTAN SUCCINATE [Suspect]

REACTIONS (1)
  - HEADACHE [None]
